FAERS Safety Report 9424565 (Version 3)
Quarter: 2013Q4

REPORT INFORMATION
  Report Type: Spontaneous
  Country: US (occurrence: US)
  Receive Date: 20130729
  Receipt Date: 20131114
  Transmission Date: 20140711
  Serious: Yes (Other)
  Sender: FDA-Public Use
  Company Number: US-NOVOPROD-383765

PATIENT
  Age: 12 Year
  Sex: Female
  Weight: 32.2 kg

DRUGS (3)
  1. NORDITROPIN FLEXPRO 10 MG/ML [Suspect]
     Indication: GROWTH HORMONE DEFICIENCY
     Dosage: 2.3 MG, QD
     Route: 058
     Dates: start: 201105, end: 20130708
  2. NORDITROPIN FLEXPRO 10 MG/ML [Suspect]
     Indication: BODY HEIGHT BELOW NORMAL
  3. ZYRTEC [Concomitant]
     Indication: HYPERSENSITIVITY
     Dosage: PRN, AS NEEDED FOR ALLERGIES
     Route: 048

REACTIONS (5)
  - Optic neuritis [Not Recovered/Not Resolved]
  - Intraocular pressure increased [Not Recovered/Not Resolved]
  - Intracranial pressure increased [Recovered/Resolved]
  - Sinusitis [Unknown]
  - Generalised anxiety disorder [Recovered/Resolved]
